FAERS Safety Report 11203571 (Version 1)
Quarter: 2015Q2

REPORT INFORMATION
  Report Type: Spontaneous
  Country: US (occurrence: US)
  Receive Date: 20150619
  Receipt Date: 20150619
  Transmission Date: 20150821
  Serious: Yes (Other)
  Sender: FDA-Public Use
  Company Number: US-COREPHARMA LLC-2015COR00120

PATIENT
  Age: 50 Year
  Sex: Male

DRUGS (2)
  1. UNSPECIFIED PROTON PUMP INHIBITOR [Concomitant]
     Active Substance: UNSPECIFIED INGREDIENT
  2. PHENYTOIN. [Suspect]
     Active Substance: PHENYTOIN
     Indication: EPILEPSY
     Dosage: UNK UNK, 1X/DAY
     Route: 048

REACTIONS (2)
  - Oesophageal stenosis [Recovering/Resolving]
  - Chemical burn of gastrointestinal tract [Unknown]
